FAERS Safety Report 8242099-0 (Version None)
Quarter: 2012Q1

REPORT INFORMATION
  Report Type: 
  Country: None (occurrence: None)
  Receive Date: 20120329
  Receipt Date: 20120316
  Transmission Date: 20120608
  Serious: Yes (Other)
  Sender: FDA-Public Use
  Company Number: AU-AMGEN-AUSSP2012013561

PATIENT
  Sex: Male

DRUGS (1)
  1. ENBREL [Suspect]
     Indication: PSORIASIS
     Dosage: 100 MG, SINGLE

REACTIONS (4)
  - TONSILLAR INFLAMMATION [None]
  - MENINGITIS ASEPTIC [None]
  - LYMPHADENOPATHY [None]
  - VESTIBULITIS [None]
